FAERS Safety Report 7529837-7 (Version None)
Quarter: 2011Q2

REPORT INFORMATION
  Report Type: 
  Country: None (occurrence: None)
  Receive Date: 20110607
  Receipt Date: 20110606
  Transmission Date: 20111010
  Serious: Yes (Hospitalization)
  Sender: FDA-Public Use
  Company Number: JP-JNJFOC-20101100613

PATIENT
  Sex: Female
  Weight: 39 kg

DRUGS (30)
  1. ALBUMIN (HUMAN) [Concomitant]
     Route: 042
     Dates: start: 20091215, end: 20091216
  2. LOXONIN [Concomitant]
     Indication: ABDOMINAL PAIN
     Route: 048
     Dates: start: 20090907
  3. SELBEX [Concomitant]
     Indication: ABDOMINAL PAIN
     Route: 048
     Dates: start: 20091019
  4. RAMELTEON [Concomitant]
     Indication: PROPHYLAXIS
     Route: 048
     Dates: start: 20090926, end: 20090930
  5. RAMELTEON [Concomitant]
     Route: 042
     Dates: start: 20090825, end: 20090825
  6. MAGNESIUM SULFATE [Concomitant]
     Indication: CONSTIPATION
     Route: 048
     Dates: start: 20090929
  7. DOXORUBICIN HCL [Suspect]
     Indication: OVARIAN CANCER RECURRENT
     Dosage: CYCLE 4
     Route: 042
     Dates: start: 20091022, end: 20091022
  8. DOXORUBICIN HCL [Suspect]
     Dosage: CYCLE 3
     Route: 042
     Dates: start: 20090925, end: 20090925
  9. DOXORUBICIN HCL [Suspect]
     Dosage: CYCLE 2
     Route: 042
     Dates: start: 20090825, end: 20090825
  10. RAMELTEON [Concomitant]
     Route: 042
     Dates: start: 20090728, end: 20090728
  11. DOXORUBICIN HCL [Suspect]
     Dosage: CYCLE 5
     Route: 042
     Dates: start: 20091117, end: 20091117
  12. DOXORUBICIN HCL [Suspect]
     Dosage: CYCLE 1
     Route: 042
     Dates: start: 20090728, end: 20090728
  13. RAMELTEON [Concomitant]
     Route: 048
     Dates: start: 20090729, end: 20090802
  14. RAMELTEON [Concomitant]
     Indication: PROPHYLAXIS
     Route: 042
     Dates: start: 20091215, end: 20091215
  15. TPN ELECTROLYTES IN PLASTIC CONTAINER [Concomitant]
     Route: 041
     Dates: start: 20091117, end: 20091117
  16. RAMELTEON [Concomitant]
     Route: 048
     Dates: start: 20091023, end: 20091027
  17. RAMELTEON [Concomitant]
     Route: 048
     Dates: start: 20091118, end: 20091122
  18. RAMELTEON [Concomitant]
     Route: 048
     Dates: start: 20090826, end: 20090830
  19. RAMELTEON [Concomitant]
     Route: 042
     Dates: start: 20091022, end: 20091022
  20. ALBUMIN (HUMAN) [Concomitant]
     Indication: HYPOPROTEINAEMIA
     Route: 042
     Dates: start: 20090810, end: 20090811
  21. TPN ELECTROLYTES IN PLASTIC CONTAINER [Concomitant]
     Indication: HYPOPROTEINAEMIA
     Route: 041
     Dates: start: 20091217, end: 20091217
  22. DOXORUBICIN HCL [Suspect]
     Dosage: CYCLE 6
     Route: 042
     Dates: start: 20091215, end: 20091215
  23. RAMELTEON [Concomitant]
     Route: 048
     Dates: start: 20091216, end: 20091220
  24. RAMELTEON [Concomitant]
     Route: 042
     Dates: start: 20090925, end: 20090925
  25. FAMOTIDINE [Concomitant]
     Indication: ABDOMINAL PAIN
     Route: 048
     Dates: start: 20091029
  26. LAXOBERON [Concomitant]
     Indication: CONSTIPATION
     Route: 048
     Dates: start: 20091218
  27. RAMELTEON [Concomitant]
     Route: 042
     Dates: start: 20091117, end: 20091117
  28. LOXONIN [Concomitant]
     Route: 048
     Dates: start: 20090812, end: 20090821
  29. PRIMPERAN TAB [Concomitant]
     Indication: ABDOMINAL PAIN
     Route: 048
     Dates: start: 20091207, end: 20091213
  30. LAXOBERON [Concomitant]
     Indication: OVARIAN CANCER RECURRENT
     Route: 048
     Dates: start: 20091218

REACTIONS (1)
  - INTESTINAL OBSTRUCTION [None]
